FAERS Safety Report 11390756 (Version 1)
Quarter: 2015Q3

REPORT INFORMATION
  Report Type: Spontaneous
  Country: FR (occurrence: FR)
  Receive Date: 20150818
  Receipt Date: 20150818
  Transmission Date: 20151125
  Serious: Yes (Other)
  Sender: FDA-Public Use
  Company Number: FR-ASTRAZENECA-2015SE78269

PATIENT
  Age: 530 Month
  Sex: Male

DRUGS (10)
  1. INEXIUM [Suspect]
     Active Substance: ESOMEPRAZOLE
     Route: 048
     Dates: start: 2011
  2. AMLOR [Suspect]
     Active Substance: AMLODIPINE BESYLATE
     Dosage: NON AZ PRODUCT
     Route: 048
     Dates: start: 2011
  3. SOLUPRED [Suspect]
     Active Substance: PREDNISOLONE
     Route: 048
     Dates: start: 2010
  4. LEVOTHYROX [Suspect]
     Active Substance: LEVOTHYROXINE
     Route: 048
     Dates: start: 2011
  5. RAMIPRIL. [Suspect]
     Active Substance: RAMIPRIL
     Route: 048
     Dates: start: 2011
  6. ESIDREX [Suspect]
     Active Substance: HYDROCHLOROTHIAZIDE
     Dosage: NON AZ PRODUCT
     Route: 048
     Dates: start: 2011
  7. TAHOR [Suspect]
     Active Substance: ATORVASTATIN CALCIUM
     Route: 048
     Dates: start: 2011
  8. MYFORTIC [Suspect]
     Active Substance: MYCOPHENOLATE SODIUM
     Route: 048
     Dates: start: 2010
  9. EUPRESSYL [Suspect]
     Active Substance: URAPIDIL
     Route: 048
     Dates: start: 2011
  10. ADVAGRAF [Suspect]
     Active Substance: TACROLIMUS
     Route: 048
     Dates: start: 201210

REACTIONS (1)
  - Pulmonary sarcoidosis [Not Recovered/Not Resolved]

NARRATIVE: CASE EVENT DATE: 201506
